FAERS Safety Report 5629682-3 (Version None)
Quarter: 2008Q1

REPORT INFORMATION
  Report Type: 
  Country: None (occurrence: None)
  Receive Date: 20080218
  Receipt Date: 20080212
  Transmission Date: 20080703
  Serious: Yes (Hospitalization)
  Sender: FDA-Public Use
  Company Number: B0508498A

PATIENT
  Age: 23 Year
  Sex: Male

DRUGS (1)
  1. AUGMENTIN '125' [Suspect]
     Indication: CELLULITIS
     Dosage: 375MG THREE TIMES PER DAY
     Route: 048
     Dates: start: 20071014, end: 20071016

REACTIONS (2)
  - DERMATITIS ALLERGIC [None]
  - RASH GENERALISED [None]
